FAERS Safety Report 17908946 (Version 1)
Quarter: 2020Q2

REPORT INFORMATION
  Report Type: Spontaneous
  Country: IT (occurrence: IT)
  Receive Date: 20200617
  Receipt Date: 20200617
  Transmission Date: 20200714
  Serious: Yes (Other)
  Sender: FDA-Public Use
  Company Number: IT-CELGENEUS-ITA-20200602300

PATIENT
  Age: 63 Year
  Sex: Female

DRUGS (11)
  1. DEXAMETHASONE. [Concomitant]
     Active Substance: DEXAMETHASONE
     Indication: PLASMACYTOMA
     Route: 065
     Dates: start: 201509
  2. CYCLOPHOSPHAMIDE. [Concomitant]
     Active Substance: CYCLOPHOSPHAMIDE
     Indication: PLASMACYTOMA
     Dosage: 1 MICROGRAM/KILOGRAM
     Route: 065
     Dates: start: 201601
  3. THALIDOMIDE [Suspect]
     Active Substance: THALIDOMIDE
     Indication: PLASMACYTOMA
     Route: 048
     Dates: start: 201509
  4. DEXAMETHASONE. [Concomitant]
     Active Substance: DEXAMETHASONE
     Route: 065
     Dates: start: 1997
  5. PREDNISONE. [Concomitant]
     Active Substance: PREDNISONE
     Indication: PLASMACYTOMA
     Dosage: 7.5 MILLIGRAM
     Route: 065
     Dates: start: 201601
  6. BENDAMUSTINE [Concomitant]
     Active Substance: BENDAMUSTINE
     Indication: PLASMACYTOMA
     Route: 065
     Dates: start: 201712
  7. BORTEZOMIB. [Concomitant]
     Active Substance: BORTEZOMIB
     Indication: PLASMACYTOMA
     Route: 065
     Dates: start: 201509
  8. PREDNISONE. [Concomitant]
     Active Substance: PREDNISONE
     Dosage: 2.5 MILLIGRAM
     Route: 065
  9. AZATHIOPRINE. [Concomitant]
     Active Substance: AZATHIOPRINE
     Indication: PLASMACYTOMA
     Dosage: .8 MICROGRAM/KILOGRAM
     Route: 065
  10. BORTEZOMIB. [Concomitant]
     Active Substance: BORTEZOMIB
     Route: 065
     Dates: start: 201712
  11. DEXAMETHASONE. [Concomitant]
     Active Substance: DEXAMETHASONE
     Indication: RHEUMATOID ARTHRITIS
     Route: 065
     Dates: start: 201712

REACTIONS (1)
  - Glomerulonephritis rapidly progressive [Unknown]
